FAERS Safety Report 9245737 (Version 3)
Quarter: 2015Q2

REPORT INFORMATION
  Report Type: Spontaneous
  Country: US (occurrence: US)
  Receive Date: 20130422
  Receipt Date: 20150622
  Transmission Date: 20150821
  Serious: Yes (Other)
  Sender: FDA-Public Use
  Company Number: US-PFIZER INC-2013124463

PATIENT
  Age: 70 Year
  Sex: Female
  Weight: 65 kg

DRUGS (2)
  1. GLEEVEC [Concomitant]
     Active Substance: IMATINIB MESYLATE
     Indication: LEUKAEMIA
     Dosage: UNK
     Dates: start: 200201
  2. LYRICA [Suspect]
     Active Substance: PREGABALIN
     Indication: MUSCLE SPASMS
     Dosage: 200 MG, 1X/DAY
     Route: 048

REACTIONS (2)
  - Arthropathy [Unknown]
  - Product use issue [Unknown]

NARRATIVE: CASE EVENT DATE: 20130410
